FAERS Safety Report 16429301 (Version 2)
Quarter: 2019Q3

REPORT INFORMATION
  Report Type: Spontaneous
  Country: JP (occurrence: JP)
  Receive Date: 20190614
  Receipt Date: 20190703
  Transmission Date: 20191004
  Serious: Yes (Hospitalization)
  Sender: FDA-Public Use
  Company Number: JP-B.I. PHARMACEUTICALS,INC./RIDGEFIELD-2019-NB-002158

PATIENT
  Age: 72 Year
  Sex: Female

DRUGS (2)
  1. JARDIANCE [Suspect]
     Active Substance: EMPAGLIFLOZIN
     Indication: DIABETES MELLITUS
     Route: 048
  2. SAMSCA [Suspect]
     Active Substance: TOLVAPTAN
     Indication: CARDIAC FAILURE
     Route: 065

REACTIONS (5)
  - Blood glucose increased [Recovered/Resolved]
  - Lumbar vertebral fracture [Unknown]
  - Renal impairment [Unknown]
  - Weight increased [Recovered/Resolved]
  - Cardiac failure [Unknown]
